FAERS Safety Report 25440302 (Version 1)
Quarter: 2025Q2

REPORT INFORMATION
  Report Type: Spontaneous
  Country: US (occurrence: US)
  Receive Date: 20250616
  Receipt Date: 20250616
  Transmission Date: 20250716
  Serious: No
  Sender: PFIZER
  Company Number: US-PFIZER INC-202500118919

PATIENT
  Sex: Female
  Weight: 51.71 kg

DRUGS (1)
  1. PREMARIN [Suspect]
     Active Substance: ESTROGENS, CONJUGATED
     Indication: Vulvovaginal burning sensation
     Route: 067

REACTIONS (2)
  - Fall [Unknown]
  - Off label use [Unknown]
